FAERS Safety Report 16024011 (Version 1)
Quarter: 2019Q1

REPORT INFORMATION
  Report Type: Spontaneous
  Country: NL (occurrence: NL)
  Receive Date: 20190301
  Receipt Date: 20190301
  Transmission Date: 20190418
  Serious: Yes (Hospitalization, Other)
  Sender: FDA-Public Use
  Company Number: NL-ASTRAZENECA-2019SE00039

PATIENT
  Age: 51 Day
  Sex: Male
  Weight: 3 kg

DRUGS (2)
  1. SYNAGIS [Suspect]
     Active Substance: PALIVIZUMAB
     Indication: PRODUCT USED FOR UNKNOWN INDICATION
     Route: 030
     Dates: start: 2018
  2. SYNAGIS [Suspect]
     Active Substance: PALIVIZUMAB
     Indication: PRODUCT USED FOR UNKNOWN INDICATION
     Dosage: LAST ADMINISTRATION WAS IN FEB 2019, ONE WEEK BEFORE THE REPORT.
     Route: 030

REACTIONS (5)
  - Respiratory syncytial virus test positive [Unknown]
  - Nasopharyngitis [Unknown]
  - Apnoea [Unknown]
  - Human rhinovirus test positive [Unknown]
  - Respiratory syncytial virus infection [Recovered/Resolved]

NARRATIVE: CASE EVENT DATE: 20181223
